FAERS Safety Report 13408970 (Version 3)
Quarter: 2024Q1

REPORT INFORMATION
  Report Type: Spontaneous
  Country: US (occurrence: US)
  Receive Date: 20170406
  Receipt Date: 20240130
  Transmission Date: 20240410
  Serious: No
  Sender: FDA-Public Use
  Company Number: US-JNJFOC-20170109236

PATIENT
  Age: 6 Year
  Sex: Male

DRUGS (10)
  1. RISPERDAL [Suspect]
     Active Substance: RISPERIDONE
     Indication: Autism spectrum disorder
     Route: 048
     Dates: start: 20041203, end: 2005
  2. RISPERDAL [Suspect]
     Active Substance: RISPERIDONE
     Route: 048
     Dates: start: 2006
  3. RISPERDAL [Suspect]
     Active Substance: RISPERIDONE
     Route: 048
     Dates: start: 2006, end: 2008
  4. RISPERDAL [Suspect]
     Active Substance: RISPERIDONE
     Route: 048
     Dates: end: 20131030
  5. RISPERIDONE [Suspect]
     Active Substance: RISPERIDONE
     Indication: Autism spectrum disorder
     Route: 048
     Dates: start: 20041203
  6. RISPERIDONE [Suspect]
     Active Substance: RISPERIDONE
     Route: 048
     Dates: start: 2008
  7. RISPERIDONE [Suspect]
     Active Substance: RISPERIDONE
     Route: 048
     Dates: start: 2011
  8. RISPERIDONE [Suspect]
     Active Substance: RISPERIDONE
     Route: 048
     Dates: start: 2013
  9. ZOLOFT [Suspect]
     Active Substance: SERTRALINE HYDROCHLORIDE
     Indication: Product used for unknown indication
     Route: 065
  10. METHYLPHENIDATE HYDROCHLORIDE [Suspect]
     Active Substance: METHYLPHENIDATE HYDROCHLORIDE
     Indication: Pruritus
     Route: 065

REACTIONS (4)
  - Heart rate increased [Unknown]
  - Emotional disorder [Unknown]
  - Gynaecomastia [Unknown]
  - Weight increased [Unknown]

NARRATIVE: CASE EVENT DATE: 20050613
